FAERS Safety Report 13477755 (Version 1)
Quarter: 2017Q2

REPORT INFORMATION
  Report Type: Spontaneous
  Country: HR (occurrence: HR)
  Receive Date: 20170425
  Receipt Date: 20170425
  Transmission Date: 20170830
  Serious: Yes (Other)
  Sender: FDA-Public Use
  Company Number: HR-009507513-1704HRV012373

PATIENT

DRUGS (2)
  1. SIMVASTATIN. [Suspect]
     Active Substance: SIMVASTATIN
     Route: 048
  2. CALCIUM CARBONATE. [Interacting]
     Active Substance: CALCIUM CARBONATE

REACTIONS (1)
  - Drug interaction [Unknown]
